FAERS Safety Report 25148238 (Version 3)
Quarter: 2025Q2

REPORT INFORMATION
  Report Type: Report from Study
  Country: US (occurrence: US)
  Receive Date: 20250402
  Receipt Date: 20250507
  Transmission Date: 20250716
  Serious: No
  Sender: SUNOVION
  Company Number: US-SMPA-2025SPA002773AA

PATIENT

DRUGS (4)
  1. ORGOVYX [Suspect]
     Active Substance: RELUGOLIX
     Indication: Prostate cancer
     Dosage: 120 MG, QD
     Route: 048
     Dates: start: 20250311
  2. ALFUZOSIN [Suspect]
     Active Substance: ALFUZOSIN
     Indication: Rash
     Route: 065
  3. ZETIA [Suspect]
     Active Substance: EZETIMIBE
     Route: 065
  4. ABIRATERONE [Concomitant]
     Active Substance: ABIRATERONE
     Indication: Prostate cancer
     Dosage: 1000 MG, QD
     Route: 065
     Dates: start: 20250403

REACTIONS (8)
  - Drug hypersensitivity [Unknown]
  - Back disorder [Unknown]
  - Rash [Unknown]
  - Fatigue [Unknown]
  - Hot flush [Unknown]
  - Asthenia [Unknown]
  - Insomnia [Unknown]
  - Incorrect dose administered [Unknown]
